FAERS Safety Report 21555752 (Version 1)
Quarter: 2022Q4

REPORT INFORMATION
  Report Type: Spontaneous
  Country: US (occurrence: None)
  Receive Date: 20221103
  Receipt Date: 20221103
  Transmission Date: 20230113
  Serious: Yes (Hospitalization)
  Sender: FDA-Public Use
  Company Number: None

PATIENT
  Age: 26 Year
  Sex: Male
  Weight: 169 kg

DRUGS (4)
  1. IOPAMIDOL [Suspect]
     Active Substance: IOPAMIDOL
     Dosage: FREQUENCY : ONCE;?
     Route: 042
  2. IOPAMIDOL [Concomitant]
     Active Substance: IOPAMIDOL
  3. AMPHOTERICIN B [Concomitant]
     Active Substance: AMPHOTERICIN B
     Dates: start: 20220815, end: 20220821
  4. AMPHOTERICIN B [Concomitant]
     Active Substance: AMPHOTERICIN B
     Dates: start: 20220831, end: 20220901

REACTIONS (7)
  - Blood creatinine increased [None]
  - Acute kidney injury [None]
  - Haemodialysis [None]
  - Tubulointerstitial nephritis [None]
  - Renal tubular necrosis [None]
  - Toxicity to various agents [None]
  - Contrast media reaction [None]

NARRATIVE: CASE EVENT DATE: 20220925
